FAERS Safety Report 7564633-6 (Version None)
Quarter: 2011Q2

REPORT INFORMATION
  Report Type: 
  Country: None (occurrence: None)
  Receive Date: 20110622
  Receipt Date: 20100719
  Transmission Date: 20111010
  Serious: No
  Sender: FDA-Public Use
  Company Number: US-MYLANLABS-2010S1013103

PATIENT
  Sex: Female

DRUGS (5)
  1. CLOZAPINE [Suspect]
     Indication: SCHIZOPHRENIA
     Route: 048
     Dates: start: 20090101
  2. MIDODRINE HYDROCHLORIDE [Concomitant]
  3. VICODIN [Concomitant]
  4. CLONIDINE [Concomitant]
  5. CARBIDOPA + LEVODOPA [Concomitant]
     Dosage: 25MG/100MG

REACTIONS (2)
  - WEIGHT INCREASED [None]
  - DROOLING [None]
